FAERS Safety Report 15074523 (Version 1)
Quarter: 2018Q3

REPORT INFORMATION
  Report Type: Spontaneous
  Country: US (occurrence: US)
  Receive Date: 20180627
  Receipt Date: 20180627
  Transmission Date: 20181010
  Serious: Yes (Hospitalization, Other)
  Sender: FDA-Public Use
  Company Number: US-SAOL THERAPEUTICS-2018SAO00578

PATIENT
  Age: 49 Year
  Sex: Female

DRUGS (7)
  1. BUPIVACAINE. [Suspect]
     Active Substance: BUPIVACAINE
     Dosage: 10001 ?G, \DAY
     Route: 037
     Dates: end: 20180409
  2. BACLOFEN. [Suspect]
     Active Substance: BACLOFEN
     Dosage: 7.9 ?G, \DAY
     Route: 037
     Dates: start: 20180409
  3. MORPHINE [Suspect]
     Active Substance: MORPHINE
     Dosage: 1500.2 ?G, \DAY
     Route: 037
     Dates: end: 20180409
  4. MORPHINE [Suspect]
     Active Substance: MORPHINE
     Dosage: 23.6 ?G, \DAY
     Route: 037
     Dates: start: 20180409
  5. BACLOFEN. [Suspect]
     Active Substance: BACLOFEN
     Dosage: 500.1 ?G, \DAY
     Route: 037
     Dates: end: 20180409
  6. BUPIVACAINE. [Suspect]
     Active Substance: BUPIVACAINE
     Dosage: 158 ?G, \DAY
     Route: 037
     Dates: start: 20180409
  7. UNSPECIFIED ORAL MEDICATIONS [Suspect]
     Active Substance: UNSPECIFIED INGREDIENT
     Route: 048

REACTIONS (6)
  - Loss of consciousness [Recovering/Resolving]
  - Dyspnoea [Recovering/Resolving]
  - Dysphagia [Recovering/Resolving]
  - Complication associated with device [Recovered/Resolved]
  - Muscle spasticity [None]
  - Drug withdrawal syndrome [Recovering/Resolving]

NARRATIVE: CASE EVENT DATE: 201804
